FAERS Safety Report 21072862 (Version 1)
Quarter: 2022Q3

REPORT INFORMATION
  Report Type: Spontaneous
  Country: PT (occurrence: GB)
  Receive Date: 20220712
  Receipt Date: 20220712
  Transmission Date: 20221027
  Serious: Yes (Other)
  Sender: FDA-Public Use
  Company Number: GB-BIAL-BIAL-10601

PATIENT
  Age: 54 Year
  Sex: Female

DRUGS (4)
  1. ESLICARBAZEPINE ACETATE [Suspect]
     Active Substance: ESLICARBAZEPINE ACETATE
     Indication: Product used for unknown indication
     Dosage: 400 MILLIGRAM, ONCE DAILY AT NIGHT
     Route: 065
     Dates: start: 201810
  2. ESLICARBAZEPINE ACETATE [Suspect]
     Active Substance: ESLICARBAZEPINE ACETATE
     Dosage: 800 MILLIGRAM, ONCE DAILY
     Route: 065
     Dates: start: 201904
  3. ESLICARBAZEPINE ACETATE [Suspect]
     Active Substance: ESLICARBAZEPINE ACETATE
     Dosage: 400 MILLIGRAM, 1X / DAY
     Route: 065
     Dates: start: 201912, end: 202008
  4. ESLICARBAZEPINE ACETATE [Suspect]
     Active Substance: ESLICARBAZEPINE ACETATE
     Dosage: 400 MILLIGRAM, 1X / DAY
     Route: 065
     Dates: start: 2020

REACTIONS (6)
  - Seizure [Unknown]
  - Partial seizures [Unknown]
  - Stress [Unknown]
  - Hypertension [Unknown]
  - Fatigue [Unknown]
  - Underdose [Unknown]

NARRATIVE: CASE EVENT DATE: 20191201
